FAERS Safety Report 7450502-9 (Version None)
Quarter: 2011Q2

REPORT INFORMATION
  Report Type: 
  Country: None (occurrence: None)
  Receive Date: 20110502
  Receipt Date: 20110423
  Transmission Date: 20111010
  Serious: Yes (Hospitalization)
  Sender: FDA-Public Use
  Company Number: DK-BRISTOL-MYERS SQUIBB COMPANY-15683592

PATIENT
  Age: 65 Year
  Sex: Male

DRUGS (4)
  1. BENDROFLUMETHIAZIDE [Suspect]
  2. FUROSEMIDE [Suspect]
     Dosage: INITIALLY DOSE INCREASED TO 1500 MG.THEN WITHDRAWAL.LOW DOSE RESTARTED
  3. METOPROLOL SUCCINATE [Suspect]
  4. SPIRONOLACTONE [Suspect]

REACTIONS (11)
  - PULMONARY CONGESTION [None]
  - HEPATIC STEATOSIS [None]
  - CARDIOMEGALY [None]
  - RENAL FAILURE ACUTE [None]
  - NORMOCHROMIC NORMOCYTIC ANAEMIA [None]
  - ABDOMINAL DISTENSION [None]
  - WEIGHT INCREASED [None]
  - BLOOD GLUCOSE INCREASED [None]
  - LEFT VENTRICULAR DYSFUNCTION [None]
  - GLYCOSYLATED HAEMOGLOBIN INCREASED [None]
  - HYPOVOLAEMIA [None]
